FAERS Safety Report 23665109 (Version 4)
Quarter: 2024Q3

REPORT INFORMATION
  Report Type: Spontaneous
  Country: US (occurrence: US)
  Receive Date: 20240322
  Receipt Date: 20240710
  Transmission Date: 20241017
  Serious: No
  Sender: BLUEPRINT MEDICINES
  Company Number: US-Blueprint Medicines Corporation-2810

PATIENT
  Sex: Female

DRUGS (1)
  1. AYVAKIT [Suspect]
     Active Substance: AVAPRITINIB
     Indication: Systemic mastocytosis
     Route: 065
     Dates: start: 20240222

REACTIONS (7)
  - Vomiting [Recovered/Resolved]
  - Thinking abnormal [Unknown]
  - Joint swelling [Unknown]
  - Hunger [Unknown]
  - Weight increased [Unknown]
  - Adverse food reaction [Unknown]
  - Product dose omission issue [Unknown]
